FAERS Safety Report 6027940-4 (Version None)
Quarter: 2009Q1

REPORT INFORMATION
  Report Type: 
  Country: None (occurrence: None)
  Receive Date: 20090105
  Receipt Date: 20081224
  Transmission Date: 20090719
  Serious: Yes (Disabling)
  Sender: FDA-Public Use
  Company Number: PHHY2008IT33631

PATIENT
  Sex: Male

DRUGS (2)
  1. DESFERAL [Suspect]
     Indication: IRON OVERLOAD
     Dosage: 25 MG, BID
     Route: 042
     Dates: end: 20080110
  2. FOSAMAX [Concomitant]
     Dosage: 70 MG / WEEK

REACTIONS (4)
  - BRONCHOALVEOLAR LAVAGE [None]
  - BRONCHOSCOPY [None]
  - DYSPNOEA [None]
  - EOSINOPHILIC PNEUMONIA [None]
